FAERS Safety Report 7000570-3 (Version None)
Quarter: 2010Q3

REPORT INFORMATION
  Report Type: 
  Country: None (occurrence: None)
  Receive Date: 20100920
  Receipt Date: 20100215
  Transmission Date: 20110219
  Serious: No
  Sender: FDA-Public Use
  Company Number: US-ASTRAZENECA-2010SE06819

PATIENT
  Age: 33 Year
  Sex: Female

DRUGS (3)
  1. SEROQUEL [Suspect]
     Route: 048
  2. TOPAMAX [Concomitant]
  3. WELLBUTRIN XL [Concomitant]

REACTIONS (1)
  - NIGHT SWEATS [None]
